FAERS Safety Report 17226059 (Version 3)
Quarter: 2020Q1

REPORT INFORMATION
  Report Type: Report from Study
  Country: US (occurrence: US)
  Receive Date: 20200102
  Receipt Date: 20200204
  Transmission Date: 20200409
  Serious: No
  Sender: FDA-Public Use
  Company Number: US-PFIZER INC-2019345529

PATIENT
  Age: 58 Year
  Sex: Female

DRUGS (3)
  1. IBRANCE [Suspect]
     Active Substance: PALBOCICLIB
     Indication: BREAST CANCER FEMALE
     Dosage: 125 MG, CYCLIC (DAILY FOR 21 DAYS ON/7 DAYS OFF)
     Route: 048
     Dates: start: 20190729
  2. FASLODEX [Concomitant]
     Active Substance: FULVESTRANT
     Dosage: UNK
  3. ANASTROZOLE. [Concomitant]
     Active Substance: ANASTROZOLE
     Dosage: UNK

REACTIONS (11)
  - Dry skin [Recovering/Resolving]
  - Acne [Unknown]
  - Fatigue [Recovering/Resolving]
  - White blood cell count decreased [Recovering/Resolving]
  - Radiation injury [Recovering/Resolving]
  - Pruritus [Recovering/Resolving]
  - Insomnia [Unknown]
  - Nausea [Recovered/Resolved]
  - Miliaria [Recovered/Resolved]
  - Stress [Unknown]
  - Somnolence [Unknown]

NARRATIVE: CASE EVENT DATE: 2019
